FAERS Safety Report 6401472-3 (Version None)
Quarter: 2009Q4

REPORT INFORMATION
  Report Type: 
  Country: None (occurrence: None)
  Receive Date: 20091015
  Receipt Date: 20091007
  Transmission Date: 20100525
  Serious: Yes (Other)
  Sender: FDA-Public Use
  Company Number: PT-BAXTER-2009BH015399

PATIENT
  Age: 12 Month
  Sex: Male

DRUGS (2)
  1. ADVATE [Suspect]
     Indication: FACTOR VIII DEFICIENCY
     Route: 042
     Dates: start: 20090601, end: 20090601
  2. ADVATE [Suspect]
     Route: 042
     Dates: start: 20090612

REACTIONS (1)
  - DEEP VEIN THROMBOSIS [None]
